FAERS Safety Report 24428996 (Version 1)
Quarter: 2024Q4

REPORT INFORMATION
  Report Type: Spontaneous
  Country: US (occurrence: None)
  Receive Date: 20241011
  Receipt Date: 20241011
  Transmission Date: 20250115
  Serious: Yes (Death)
  Sender: Public
  Company Number: None

PATIENT
  Age: 78 Year
  Sex: Female
  Weight: 95 kg

DRUGS (1)
  1. YESCARTA [Suspect]
     Active Substance: AXICABTAGENE CILOLEUCEL
     Dates: start: 20240421, end: 20240421

REACTIONS (11)
  - Cytokine release syndrome [None]
  - Immune effector cell-associated neurotoxicity syndrome [None]
  - Haemophagocytic lymphohistiocytosis [None]
  - Coagulopathy [None]
  - Multiple organ dysfunction syndrome [None]
  - Respiratory failure [None]
  - Liver injury [None]
  - Renal injury [None]
  - Haemorrhage [None]
  - Pulmonary alveolar haemorrhage [None]
  - Cardiac arrest [None]

NARRATIVE: CASE EVENT DATE: 20240421
